FAERS Safety Report 7691530-8 (Version None)
Quarter: 2011Q3

REPORT INFORMATION
  Report Type: 
  Country: None (occurrence: None)
  Receive Date: 20110817
  Receipt Date: 20110817
  Transmission Date: 20111222
  Serious: Yes (Hospitalization)
  Sender: FDA-Public Use
  Company Number: None

PATIENT
  Sex: Female
  Weight: 74.09 kg

DRUGS (2)
  1. CISPLATIN [Suspect]
     Dosage: 137 MG
     Dates: end: 20110610
  2. PACLITAXEL [Suspect]
     Dosage: 355 MG
     Dates: end: 20110616

REACTIONS (1)
  - NEUTROPENIA [None]
